FAERS Safety Report 4378176-4 (Version None)
Quarter: 2004Q2

REPORT INFORMATION
  Report Type: 
  Country: None (occurrence: None)
  Receive Date: 20040616
  Receipt Date: 20020219
  Transmission Date: 20050107
  Serious: Yes (Death, Other)
  Sender: FDA-Public Use
  Company Number: 200211359GDDC

PATIENT
  Sex: Male

DRUGS (8)
  1. LANTUS [Suspect]
     Indication: DIABETES MELLITUS NON-INSULIN-DEPENDENT
     Dosage: DOSE UNIT: UNITS
     Route: 058
     Dates: start: 20010705
  2. CARDIZEM CD [Concomitant]
     Route: 048
     Dates: start: 19950101
  3. PRANDIN [Concomitant]
     Route: 048
     Dates: start: 20010705
  4. PRAVACHOL [Concomitant]
     Dates: start: 19950101
  5. HUMULIN N [Concomitant]
     Dosage: DOSE UNIT: UNITS
     Route: 058
  6. HUMULIN 70/30 [Concomitant]
     Dosage: DOSE UNIT: UNITS
     Route: 058
     Dates: start: 19950120, end: 20010705
  7. ULTRALENTE INSULIN [Concomitant]
     Dosage: DOSE UNIT: UNITS
     Route: 058
     Dates: start: 19950120
  8. VASOTEC [Concomitant]
     Route: 048

REACTIONS (3)
  - INJECTION SITE REACTION [None]
  - LEIOMYOSARCOMA [None]
  - SARCOMA [None]
